FAERS Safety Report 8313811-7 (Version None)
Quarter: 2012Q2

REPORT INFORMATION
  Report Type: 
  Country: None (occurrence: None)
  Receive Date: 20120426
  Receipt Date: 20120420
  Transmission Date: 20120825
  Serious: Yes (Other)
  Sender: FDA-Public Use
  Company Number: JP-BRISTOL-MYERS SQUIBB COMPANY-16319766

PATIENT
  Age: 55 Year
  Sex: Male

DRUGS (8)
  1. TORSEMIDE [Concomitant]
     Route: 048
     Dates: start: 20110928
  2. METFORMIN HCL [Suspect]
     Indication: TYPE 2 DIABETES MELLITUS
     Route: 048
     Dates: start: 20110830
  3. ETHYL ICOSAPENTATE [Concomitant]
     Route: 048
     Dates: start: 20110730
  4. DABIGATRAN ETEXILATE [Concomitant]
     Dosage: 4 CAPS/DAY FROM 28SEP11-300MG
  5. LIVALO [Concomitant]
     Route: 048
     Dates: start: 20110928
  6. LANIRAPID [Concomitant]
     Route: 048
     Dates: start: 20111008, end: 20111111
  7. PILSICAINIDE HCL [Concomitant]
     Route: 048
     Dates: start: 20111022, end: 20111111
  8. ALLOPURINOL [Concomitant]
     Route: 048
     Dates: start: 20100828

REACTIONS (2)
  - CARDIAC FAILURE [None]
  - ATRIAL FIBRILLATION [None]
